FAERS Safety Report 16437107 (Version 1)
Quarter: 2019Q2

REPORT INFORMATION
  Report Type: Spontaneous
  Country: BR (occurrence: BR)
  Receive Date: 20190615
  Receipt Date: 20190615
  Transmission Date: 20190711
  Serious: Yes (Other)
  Sender: FDA-Public Use
  Company Number: PHHY2018BR040813

PATIENT
  Age: 11 Year
  Sex: Female
  Weight: 33 kg

DRUGS (7)
  1. RITALIN LA [Suspect]
     Active Substance: METHYLPHENIDATE HYDROCHLORIDE
     Indication: DYSLEXIA
  2. RITALIN [Suspect]
     Active Substance: METHYLPHENIDATE HYDROCHLORIDE
     Indication: DYSLEXIA
  3. DEPAKENE [Suspect]
     Active Substance: VALPROIC ACID
     Indication: PRODUCT USED FOR UNKNOWN INDICATION
     Dosage: UNK
     Route: 065
  4. FLUTICAPS [Concomitant]
     Indication: PRODUCT USED FOR UNKNOWN INDICATION
     Dosage: UNK (DISSOLVED WITH ASCAROSE AND DRIPPED IN THE THROAT)
     Route: 048
  5. RITALIN [Suspect]
     Active Substance: METHYLPHENIDATE HYDROCHLORIDE
     Indication: ATTENTION DEFICIT/HYPERACTIVITY DISORDER
     Dosage: 10 MG, QD
     Route: 065
     Dates: start: 201810
  6. PANTOPRAZOLE [Concomitant]
     Active Substance: PANTOPRAZOLE
     Indication: PRODUCT USED FOR UNKNOWN INDICATION
     Dosage: UNK
     Route: 065
  7. RITALIN LA [Suspect]
     Active Substance: METHYLPHENIDATE HYDROCHLORIDE
     Indication: ATTENTION DEFICIT/HYPERACTIVITY DISORDER
     Dosage: 1 DF, QD (INGESTED WITH WATER)
     Route: 048
     Dates: start: 201802, end: 201803

REACTIONS (16)
  - Attention deficit/hyperactivity disorder [Unknown]
  - Catatonia [Recovering/Resolving]
  - Paralysis [Recovered/Resolved]
  - Psychomotor hyperactivity [Unknown]
  - Amnesia [Recovering/Resolving]
  - Gait disturbance [Recovering/Resolving]
  - Tooth injury [Unknown]
  - Syncope [Unknown]
  - Head injury [Unknown]
  - Decreased appetite [Recovering/Resolving]
  - Fall [Unknown]
  - Mouth injury [Unknown]
  - Somnolence [Unknown]
  - Epilepsy [Unknown]
  - Loss of consciousness [Unknown]
  - Condition aggravated [Unknown]

NARRATIVE: CASE EVENT DATE: 201802
